FAERS Safety Report 23773776 (Version 1)
Quarter: 2024Q2

REPORT INFORMATION
  Report Type: Spontaneous
  Country: US (occurrence: None)
  Receive Date: 20240421
  Receipt Date: 20240421
  Transmission Date: 20240716
  Serious: Yes (Hospitalization)
  Sender: FDA-Public Use
  Company Number: None

PATIENT
  Age: 64 Year
  Sex: Male

DRUGS (3)
  1. IRINOTECAN HYDROCHLORIDE [Suspect]
     Active Substance: IRINOTECAN HYDROCHLORIDE
     Dates: start: 20221108, end: 20230603
  2. FLUOROURACIL [Suspect]
     Active Substance: FLUOROURACIL
     Dates: start: 20220308, end: 20230603
  3. LEUCOVORIN CALCIUM [Suspect]
     Active Substance: LEUCOVORIN CALCIUM

REACTIONS (2)
  - Colitis [None]
  - Mucosal inflammation [None]

NARRATIVE: CASE EVENT DATE: 20230627
